FAERS Safety Report 8095017-2 (Version None)
Quarter: 2012Q1

REPORT INFORMATION
  Report Type: 
  Country: None (occurrence: None)
  Receive Date: 20120131
  Receipt Date: 20120131
  Transmission Date: 20120608
  Serious: Yes (Hospitalization)
  Sender: FDA-Public Use
  Company Number: None

PATIENT
  Age: 56 Year
  Sex: Male

DRUGS (9)
  1. DOCUSATE [Concomitant]
  2. SENNA [Concomitant]
  3. DEXAMETHASONE [Concomitant]
  4. ZYTIGA [Concomitant]
  5. LACTULOSE [Concomitant]
  6. IBUPROFEN [Suspect]
     Indication: PAIN
     Dosage: 800 MG
     Route: 048
  7. LUPRON [Concomitant]
  8. MORPHINE [Concomitant]
  9. ONDANSETRON HCL [Concomitant]

REACTIONS (2)
  - SYNCOPE [None]
  - OCCULT BLOOD POSITIVE [None]
